FAERS Safety Report 5793050-4 (Version None)
Quarter: 2008Q2

REPORT INFORMATION
  Report Type: 
  Country: None (occurrence: None)
  Receive Date: 20080627
  Receipt Date: 20080618
  Transmission Date: 20081010
  Serious: Yes (Hospitalization)
  Sender: FDA-Public Use
  Company Number: JP-JNJFOC-20080605255

PATIENT
  Sex: Female
  Weight: 51 kg

DRUGS (16)
  1. REMICADE [Suspect]
     Route: 042
  2. REMICADE [Suspect]
     Route: 042
  3. REMICADE [Suspect]
     Route: 042
  4. REMICADE [Suspect]
     Indication: RHEUMATOID ARTHRITIS
     Route: 042
  5. RHEUMATREX [Suspect]
     Indication: RHEUMATOID ARTHRITIS
     Route: 048
  6. PREDNISOLONE [Suspect]
     Indication: RHEUMATOID ARTHRITIS
     Route: 048
  7. LIPITOR [Concomitant]
     Indication: HYPERLIPIDAEMIA
     Route: 048
  8. CARFENIL [Concomitant]
     Indication: RHEUMATOID ARTHRITIS
     Route: 048
  9. VOLTAREN [Concomitant]
     Indication: LUMBAR SPINAL STENOSIS
     Route: 048
  10. BAKTAR [Concomitant]
     Indication: INFECTION PROPHYLAXIS
     Dosage: TUES. AND FRI. ONLY
     Route: 048
  11. SELBEX [Concomitant]
     Dosage: 2 PAC DAILY
     Route: 048
  12. PREDONINE [Concomitant]
     Route: 004
  13. MEROPEN [Concomitant]
  14. VONAFEC [Concomitant]
     Route: 054
  15. NAUZELIN [Concomitant]
     Route: 048
  16. ROCEPHIN [Concomitant]

REACTIONS (1)
  - PERITONEAL TUBERCULOSIS [None]
